FAERS Safety Report 14928474 (Version 1)
Quarter: 2018Q2

REPORT INFORMATION
  Report Type: Report from Study
  Country: IT (occurrence: IT)
  Receive Date: 20180523
  Receipt Date: 20180523
  Transmission Date: 20180711
  Serious: Yes (Hospitalization)
  Sender: FDA-Public Use
  Company Number: IT-GLAXOSMITHKLINE-IT2018087129

PATIENT
  Age: 53 Year
  Sex: Female

DRUGS (6)
  1. DIAZEPAM. [Suspect]
     Active Substance: DIAZEPAM
     Indication: MUSCLE TWITCHING
     Dosage: 75 GTT, QD
     Route: 048
     Dates: start: 20170417, end: 20170424
  2. SOLDESAM [Suspect]
     Active Substance: DEXAMETHASONE
     Indication: MUSCLE TWITCHING
     Dosage: UNK
     Route: 030
     Dates: start: 20170417, end: 20170424
  3. LAROXYL [Concomitant]
     Active Substance: AMITRIPTYLINE HYDROCHLORIDE
     Indication: CERVICOBRACHIAL SYNDROME
     Dosage: UNK
     Route: 048
  4. DELORAZEPAM [Concomitant]
     Active Substance: DELORAZEPAM
     Indication: INSOMNIA
     Dosage: UNK
     Route: 048
  5. VOLTAREN [Suspect]
     Active Substance: DICLOFENAC SODIUM
     Indication: MUSCLE TWITCHING
     Route: 065
     Dates: start: 20170417, end: 20170424
  6. VOLTADVANCE [Suspect]
     Active Substance: DICLOFENAC SODIUM
     Indication: MUSCLE TWITCHING
     Dosage: UNK
     Route: 048
     Dates: start: 20170417, end: 20170424

REACTIONS (3)
  - Tachycardia [Not Recovered/Not Resolved]
  - Chest discomfort [Not Recovered/Not Resolved]
  - Cervicogenic vertigo [Not Recovered/Not Resolved]

NARRATIVE: CASE EVENT DATE: 20170724
